FAERS Safety Report 11203862 (Version 9)
Quarter: 2016Q3

REPORT INFORMATION
  Report Type: Report from Study
  Country: US (occurrence: US)
  Receive Date: 20150619
  Receipt Date: 20160902
  Transmission Date: 20161109
  Serious: Yes (Other)
  Sender: FDA-Public Use
  Company Number: US-SA-2015SA088629

PATIENT
  Age: 36 Year
  Sex: Female

DRUGS (3)
  1. LEMTRADA [Suspect]
     Active Substance: ALEMTUZUMAB
     Indication: MULTIPLE SCLEROSIS
     Route: 041
     Dates: start: 20160801, end: 20160803
  2. BENADRYL [Concomitant]
     Active Substance: DIPHENHYDRAMINE HYDROCHLORIDE
     Indication: PREMEDICATION
     Dates: start: 20150612, end: 20150612
  3. LEMTRADA [Suspect]
     Active Substance: ALEMTUZUMAB
     Indication: MULTIPLE SCLEROSIS
     Route: 041
     Dates: start: 20150608, end: 20150612

REACTIONS (13)
  - Gingival swelling [Unknown]
  - Urinary tract infection [Recovering/Resolving]
  - Oedema peripheral [Not Recovered/Not Resolved]
  - Pulmonary congestion [Recovered/Resolved]
  - Dysuria [Unknown]
  - Productive cough [Recovering/Resolving]
  - Rash [Recovering/Resolving]
  - Hypoaesthesia [Unknown]
  - Fatigue [Not Recovered/Not Resolved]
  - Dyspepsia [Unknown]
  - Muscle spasms [Unknown]
  - Chest discomfort [Recovering/Resolving]
  - Urticaria [Recovering/Resolving]

NARRATIVE: CASE EVENT DATE: 2015
